FAERS Safety Report 9387127 (Version 1)
Quarter: 2013Q3

REPORT INFORMATION
  Report Type: Spontaneous
  Country: IT (occurrence: IT)
  Receive Date: 20130708
  Receipt Date: 20130708
  Transmission Date: 20140515
  Serious: Yes (Death, Life-Threatening)
  Sender: FDA-Public Use
  Company Number: IT-BAYER-2013-079166

PATIENT
  Age: 86 Year
  Sex: Female

DRUGS (4)
  1. CARDIOASPIRIN [Suspect]
     Dosage: 100 MG, QD
     Route: 048
     Dates: start: 20080101, end: 20130423
  2. BISOPROLOL [Concomitant]
     Dosage: 2.5 MG, QD
     Route: 048
  3. SINEMET [Concomitant]
     Indication: PARKINSONISM
     Dosage: 4 DF, QD
     Route: 048
  4. COAPROVEL [Concomitant]
     Dosage: UNK
     Route: 048

REACTIONS (2)
  - Subarachnoid haemorrhage [Fatal]
  - Cerebral haematoma [Fatal]
